FAERS Safety Report 6770215-6 (Version None)
Quarter: 2010Q2

REPORT INFORMATION
  Report Type: 
  Country: None (occurrence: None)
  Receive Date: 20100615
  Receipt Date: 20100609
  Transmission Date: 20101027
  Serious: Yes (Other)
  Sender: FDA-Public Use
  Company Number: ZA-SANOFI-AVENTIS-2009SA007369

PATIENT
  Sex: Female
  Weight: 1.7 kg

DRUGS (2)
  1. LANTUS [Suspect]
     Indication: GESTATIONAL DIABETES
     Route: 064
  2. APIDRA [Suspect]
     Indication: DIABETIC RELATIVE
     Route: 064

REACTIONS (2)
  - DRUG EXPOSURE DURING PREGNANCY [None]
  - PREMATURE BABY [None]
